FAERS Safety Report 9681817 (Version 1)
Quarter: 2013Q4

REPORT INFORMATION
  Report Type: Spontaneous
  Country: DK (occurrence: DK)
  Receive Date: 20131111
  Receipt Date: 20131111
  Transmission Date: 20140711
  Serious: Yes (Other)
  Sender: FDA-Public Use
  Company Number: PHHY2013DK124391

PATIENT
  Sex: Male

DRUGS (8)
  1. CICLOSPORIN [Suspect]
     Indication: DERMATITIS
  2. PREDNISOLONE [Suspect]
     Indication: DERMATITIS
     Dosage: 10-25 MG
  3. PREDNISOLONE [Suspect]
     Dosage: 10-15MG/DAY
  4. PREDNISOLONE [Suspect]
     Dosage: 5 MG, UNK
  5. AZATHIOPRINE [Concomitant]
     Indication: DERMATITIS
  6. ACITRETIN [Concomitant]
     Indication: DERMATITIS
  7. ALITRETINOIN [Concomitant]
     Indication: DERMATITIS
     Dosage: 60 MG, UNK
  8. MOMETASONE [Concomitant]
     Indication: DERMATITIS
     Dosage: 1 DF, UNK

REACTIONS (2)
  - Nephropathy toxic [Unknown]
  - Drug effect incomplete [Unknown]
